FAERS Safety Report 19798598 (Version 1)
Quarter: 2021Q3

REPORT INFORMATION
  Report Type: Spontaneous
  Country: US (occurrence: US)
  Receive Date: 20210903
  Receipt Date: 20210903
  Transmission Date: 20211014
  Serious: No
  Sender: FDA-Public Use
  Company Number: None

PATIENT
  Age: 71 Year
  Sex: Male

DRUGS (1)
  1. REGEN?COV [Suspect]
     Active Substance: CASIRIVIMAB\IMDEVIMAB
     Dates: start: 20210826, end: 20210826

REACTIONS (4)
  - Restlessness [None]
  - Respiratory depression [None]
  - Oxygen saturation decreased [None]
  - Tachycardia [None]

NARRATIVE: CASE EVENT DATE: 20210826
